FAERS Safety Report 7638829-9 (Version None)
Quarter: 2011Q3

REPORT INFORMATION
  Report Type: 
  Country: None (occurrence: None)
  Receive Date: 20110727
  Receipt Date: 20110713
  Transmission Date: 20111222
  Serious: Yes (Hospitalization)
  Sender: FDA-Public Use
  Company Number: US-MYLANLABS-2011S1014886

PATIENT
  Age: 75 Year
  Sex: Male
  Weight: 77 kg

DRUGS (17)
  1. DIPHENOXYLATE HCL + ATROPINE SULFATE [Concomitant]
     Indication: DIARRHOEA
     Dosage: 4 TIMES DAILY AS NEEDED
     Route: 065
  2. FONDAPARINUX SODIUM [Concomitant]
     Dosage: 7.5 MG DAILY
     Route: 058
  3. RITONAVIR [Interacting]
     Indication: HIV INFECTION
     Dosage: 100 MG DAILY
     Route: 065
  4. COLECALCIFEROL [Concomitant]
     Dosage: 400 UNITS DAILY
     Route: 065
  5. NEVIRAPINE [Concomitant]
     Indication: HIV INFECTION
     Dosage: 300MG TWICE DAILY
     Route: 065
  6. TESTOSTERONE [Concomitant]
     Dosage: 5 MG/24 HOURS
     Route: 062
  7. LISINOPRIL [Concomitant]
     Indication: HYPERTENSION
     Dosage: 10 MG DAILY
     Route: 065
  8. BUDESONIDE [Suspect]
     Indication: COLITIS
     Dosage: 3 MG THREE TIMES DAILY
     Route: 048
  9. LEVOTHYROXINE SODIUM [Concomitant]
     Indication: HYPOTHYROIDISM
     Dosage: 0.112 MG DAILY
     Route: 065
  10. LOPERAMIDE [Concomitant]
     Dosage: 2 MG AS NEEDED
     Route: 065
  11. RANITIDINE [Concomitant]
     Dosage: 300MG DAILY
     Route: 065
  12. VARDENAFIL HYDROCHLORIDE (LEVITRA) [Concomitant]
     Dosage: 20MG AS NEEDED
     Route: 065
  13. ATENOLOL [Concomitant]
     Indication: HYPERTENSION
     Dosage: 12.5 MG TWICE DAILY
     Route: 065
  14. CALCITRIOL [Concomitant]
     Dosage: 0.25 MICROG DAILY
     Route: 065
  15. ATAZANAVIR [Concomitant]
     Indication: HIV INFECTION
     Dosage: 300 MG DAILY
     Route: 065
  16. LAMIVUDINE [Concomitant]
     Indication: HIV INFECTION
     Dosage: 150MG DAILY
     Route: 065
  17. TRAZODONE HCL [Concomitant]
     Dosage: 50MG AT BEDTIME
     Route: 065

REACTIONS (2)
  - CUSHING'S SYNDROME [None]
  - DRUG INTERACTION [None]
